FAERS Safety Report 16438516 (Version 1)
Quarter: 2019Q2

REPORT INFORMATION
  Report Type: Spontaneous
  Country: JP (occurrence: JP)
  Receive Date: 20190617
  Receipt Date: 20190617
  Transmission Date: 20190711
  Serious: Yes (Other)
  Sender: FDA-Public Use
  Company Number: JP-GLAXOSMITHKLINE-JP2019JPN105294

PATIENT

DRUGS (3)
  1. HOKUNALIN [Suspect]
     Active Substance: TULOBUTEROL
     Dosage: UNK
     Route: 048
  2. MEPTIN [Suspect]
     Active Substance: PROCATEROL HYDROCHLORIDE
     Route: 048
  3. SULTANOL [Suspect]
     Active Substance: ALBUTEROL SULFATE
     Dosage: UNK
     Route: 055

REACTIONS (2)
  - Gastrointestinal oedema [Recovered/Resolved]
  - Abdominal distension [Recovered/Resolved]
